FAERS Safety Report 4302396-8 (Version None)
Quarter: 2004Q1

REPORT INFORMATION
  Report Type: 
  Country: None (occurrence: None)
  Receive Date: 20040213
  Receipt Date: 20040130
  Transmission Date: 20041129
  Serious: Yes (Death)
  Sender: FDA-Public Use
  Company Number: C2003-3173.01

PATIENT
  Age: 43 Year
  Sex: Female

DRUGS (12)
  1. CLOZAPINE [Suspect]
     Indication: SCHIZOAFFECTIVE DISORDER
     Dosage: 100MG Q AM, 200MG Q PM, 300MG Q HS, ORAL
     Route: 048
     Dates: start: 20000320, end: 20031130
  2. BENZTROPINE MESYLATE [Concomitant]
  3. BUPROPION HCL [Concomitant]
  4. DIPHENHYDRAMINE HCL [Concomitant]
  5. DIVALPROEX SODIUM [Concomitant]
  6. LEVOTHYROXINE SODIUM [Concomitant]
  7. LITHIUM CARBONATE [Concomitant]
  8. LORATADINE [Concomitant]
  9. RISPERIDONE [Concomitant]
  10. HALOPERIDOL DECANOATE [Concomitant]
  11. RISPERIDONE M-TAB [Concomitant]
  12. IBUPROFEN [Concomitant]

REACTIONS (7)
  - CIRCULATORY COLLAPSE [None]
  - CONFUSIONAL STATE [None]
  - FALL [None]
  - MENTAL STATUS CHANGES [None]
  - SOCIAL AVOIDANT BEHAVIOUR [None]
  - SUDDEN DEATH [None]
  - SWELLING [None]
